FAERS Safety Report 6970842-7 (Version None)
Quarter: 2010Q3

REPORT INFORMATION
  Report Type: 
  Country: None (occurrence: None)
  Receive Date: 20100824
  Receipt Date: 20091030
  Transmission Date: 20110219
  Serious: Yes (Other)
  Sender: FDA-Public Use
  Company Number: 2009292154

PATIENT
  Age: 65 Year
  Sex: Male
  Weight: 74.8 kg

DRUGS (4)
  1. NORVASC [Suspect]
     Indication: HYPERTENSION
     Dosage: 10 MG
     Dates: start: 20090601, end: 20090101
  2. HYDROCHLOROTHIAZIDE [Suspect]
     Indication: HYPERTENSION
     Dosage: 12.5 MG
     Dates: start: 20090101, end: 20090101
  3. LISINOPRIL [Suspect]
     Indication: HYPERTENSION
     Dates: start: 20090101, end: 20090101
  4. METOPROLOL SUCCINATE [Suspect]
     Indication: HYPERTENSION
     Dosage: 50 MG
     Dates: start: 20090101

REACTIONS (5)
  - BLOOD PRESSURE INADEQUATELY CONTROLLED [None]
  - DIZZINESS [None]
  - HEADACHE [None]
  - NAUSEA [None]
  - TEMPERATURE INTOLERANCE [None]
